FAERS Safety Report 19858285 (Version 1)
Quarter: 2021Q3

REPORT INFORMATION
  Report Type: Spontaneous
  Country: CO (occurrence: CO)
  Receive Date: 20210921
  Receipt Date: 20210921
  Transmission Date: 20211014
  Serious: Yes (Hospitalization, Other)
  Sender: FDA-Public Use
  Company Number: CO-LUPIN PHARMACEUTICALS INC.-2021-17747

PATIENT
  Age: 12 Day
  Sex: Male
  Weight: 2.4 kg

DRUGS (4)
  1. MEROPENEM. [Suspect]
     Active Substance: MEROPENEM
     Indication: SEPSIS NEONATAL
     Dosage: UNK
     Route: 065
     Dates: start: 2015, end: 2015
  2. CEFEPIME [Suspect]
     Active Substance: CEFEPIME HYDROCHLORIDE
     Indication: SEPSIS NEONATAL
     Dosage: UNK
     Route: 065
     Dates: start: 2015, end: 2015
  3. PIPERACILLIN/TAZOBACTAM [Suspect]
     Active Substance: PIPERACILLIN SODIUM\TAZOBACTAM SODIUM
     Indication: SEPSIS NEONATAL
     Dosage: UNK
     Route: 065
     Dates: start: 2015, end: 2015
  4. VANCOMYCIN [Suspect]
     Active Substance: VANCOMYCIN
     Indication: SEPSIS NEONATAL
     Dosage: UNK
     Route: 065
     Dates: start: 2015, end: 2015

REACTIONS (3)
  - Candida infection [Recovered/Resolved]
  - Neonatal candida infection [Recovered/Resolved]
  - Systemic candida [Recovered/Resolved]

NARRATIVE: CASE EVENT DATE: 20150203
